FAERS Safety Report 4319299-5 (Version None)
Quarter: 2004Q1

REPORT INFORMATION
  Report Type: 
  Country: None (occurrence: None)
  Receive Date: 20040316
  Receipt Date: 20040305
  Transmission Date: 20041129
  Serious: Yes (Other)
  Sender: FDA-Public Use
  Company Number: HQWYE396915JAN04

PATIENT
  Age: 44 Year
  Sex: Female

DRUGS (4)
  1. RAPAMUNE [Suspect]
     Indication: IMMUNOSUPPRESSION
     Dosage: 8-15 MG, DAILY
     Route: 048
     Dates: start: 20021215
  2. TACROLIMUS (TACROLIMUS) [Concomitant]
  3. CAMPATH [Concomitant]
  4. REMICADE [Concomitant]

REACTIONS (2)
  - POSITRON EMISSION TOMOGRAM ABNORMAL [None]
  - TREMOR [None]
